FAERS Safety Report 14780079 (Version 1)
Quarter: 2018Q2

REPORT INFORMATION
  Report Type: Report from Study
  Country: CH (occurrence: CH)
  Receive Date: 20180419
  Receipt Date: 20180419
  Transmission Date: 20180711
  Serious: Yes (Other)
  Sender: FDA-Public Use
  Company Number: CH-TEVA-2018-CH-882040

PATIENT
  Age: 17 Year

DRUGS (4)
  1. TRAMADOL. [Suspect]
     Active Substance: TRAMADOL
     Indication: PAIN
     Route: 065
  2. FLUVOXAMINE [Suspect]
     Active Substance: FLUVOXAMINE
     Indication: PAIN
     Route: 065
  3. CETIRIZINE [Suspect]
     Active Substance: CETIRIZINE HYDROCHLORIDE
     Indication: PAIN
     Route: 065
  4. RISPERIDONE. [Interacting]
     Active Substance: RISPERIDONE
     Indication: PAIN
     Route: 065

REACTIONS (6)
  - Depressed level of consciousness [Unknown]
  - Intentional product misuse [Unknown]
  - Respiratory depression [Unknown]
  - Blood pressure increased [Unknown]
  - Drug interaction [Unknown]
  - Intentional overdose [Unknown]
